FAERS Safety Report 13613363 (Version 1)
Quarter: 2017Q2

REPORT INFORMATION
  Report Type: Report from Study
  Country: RU (occurrence: RU)
  Receive Date: 20170605
  Receipt Date: 20170605
  Transmission Date: 20170830
  Serious: Yes (Other)
  Sender: FDA-Public Use
  Company Number: RU-TEVA-774114ISR

PATIENT
  Age: 11 Year
  Sex: Male
  Weight: 79.5 kg

DRUGS (5)
  1. ETOPOSIDE. [Suspect]
     Active Substance: ETOPOSIDE
  2. VINCRISTINE [Suspect]
     Active Substance: VINCRISTINE
  3. LONQUEX [Suspect]
     Active Substance: LIPEGFILGRASTIM
     Indication: PROPHYLAXIS
     Dosage: LAST DOSE PRIOR TO SAE: 20-JAN-2017
     Route: 058
     Dates: start: 20170120
  4. IFOSFAMIDE. [Suspect]
     Active Substance: IFOSFAMIDE
     Dosage: 1 CYCLE
  5. DOXORUBICIN [Suspect]
     Active Substance: DOXORUBICIN

REACTIONS (2)
  - Lymphopenia [Recovered/Resolved]
  - Thrombocytopenia [Recovered/Resolved]

NARRATIVE: CASE EVENT DATE: 20170120
